FAERS Safety Report 8311566-3 (Version None)
Quarter: 2012Q2

REPORT INFORMATION
  Report Type: 
  Country: None (occurrence: None)
  Receive Date: 20120425
  Receipt Date: 20120420
  Transmission Date: 20120825
  Serious: Yes (Death)
  Sender: FDA-Public Use
  Company Number: AU-MERCK-1202USA01112

PATIENT
  Age: 60 Year
  Sex: Female

DRUGS (6)
  1. ASPIRIN [Concomitant]
     Route: 065
  2. AMBISOME [Suspect]
     Indication: CANDIDIASIS
     Route: 065
  3. PENTOXIFYLLINE [Concomitant]
     Route: 065
  4. IRON (UNSPECIFIED) [Concomitant]
     Route: 065
  5. CANCIDAS [Suspect]
     Route: 042
  6. ERAXIS [Suspect]
     Indication: CANDIDIASIS
     Route: 041

REACTIONS (2)
  - DEATH [None]
  - BLOOD BILIRUBIN INCREASED [None]
